FAERS Safety Report 20143387 (Version 4)
Quarter: 2022Q1

REPORT INFORMATION
  Report Type: Spontaneous
  Country: FR (occurrence: FR)
  Receive Date: 20211203
  Receipt Date: 20220315
  Transmission Date: 20220423
  Serious: Yes (Death, Hospitalization, Other)
  Sender: FDA-Public Use
  Company Number: FR-AFSSAPS-MA20215175

PATIENT
  Age: 26 Year
  Sex: Male

DRUGS (10)
  1. ARIPIPRAZOLE [Interacting]
     Active Substance: ARIPIPRAZOLE
     Indication: Mania
     Dosage: 10 MILLIGRAM, ONCE A DAY
     Route: 048
     Dates: start: 20211026, end: 20211104
  2. ARIPIPRAZOLE [Interacting]
     Active Substance: ARIPIPRAZOLE
     Dosage: 1 DOSAGE FORM
     Route: 048
     Dates: start: 20211026, end: 20211104
  3. ZOPICLONE [Interacting]
     Active Substance: ZOPICLONE
     Indication: Mania
     Dosage: 1 DOSAGE FORM, 7.5MG IN THE EVENING ZOPICLONE ARROW 7,5 MG, COMPRIM? PELLICUL? S?CABLE
     Route: 048
     Dates: start: 20211019
  4. HALDOL [Interacting]
     Active Substance: HALOPERIDOL
     Indication: Mania
     Dosage: 50 GTT DROPS, FOUR TIMES/DAY (50 MG)
     Route: 048
     Dates: start: 20211106
  5. HALDOL [Interacting]
     Active Substance: HALOPERIDOL
     Dosage: 100/50/100 MG / D , DAILY
     Route: 048
     Dates: start: 20211106
  6. LOXAPINE [Interacting]
     Active Substance: LOXAPINE
     Indication: Mania
     Dosage: 325 GTT DROPS 75/75/75/75 MG LOXAPAC, SOLUTION BUVABLE
     Route: 048
     Dates: start: 20211019, end: 20211106
  7. RISPERDAL [Interacting]
     Active Substance: RISPERIDONE
     Indication: Mania
     Dosage: 4 MILLIGRAM, ONCE A DAY
     Route: 048
     Dates: start: 20211016, end: 20211029
  8. CYAMEMAZINE [Interacting]
     Active Substance: CYAMEMAZINE
     Indication: Mania
     Dosage: 50 GTT DROPS, FOUR TIMES/DAY
     Route: 048
     Dates: start: 20211016, end: 20211019
  9. TRIMEPRAZINE [Interacting]
     Active Substance: TRIMEPRAZINE
     Indication: Mania
     Dosage: 20 GTT DROPS 20 DROPS IN THE EVENING THERALENE 4 POUR CENT, SOLUTION BUVABLE EN GOUTTES
     Route: 048
     Dates: start: 20211029
  10. VALIUM [Interacting]
     Active Substance: DIAZEPAM
     Indication: Mania
     Dosage: 105 GTT DROPS 15/30/30/30 DROPS / DAY VALIUM 1 POUR CENT ROCHE, SOLUTION BUVABLE EN GOUTTE
     Route: 048
     Dates: start: 20211029

REACTIONS (2)
  - Ileus paralytic [Fatal]
  - Drug interaction [Fatal]

NARRATIVE: CASE EVENT DATE: 20211108
